FAERS Safety Report 20846891 (Version 1)
Quarter: 2022Q2

REPORT INFORMATION
  Report Type: Spontaneous
  Country: CN (occurrence: CN)
  Receive Date: 20220519
  Receipt Date: 20220519
  Transmission Date: 20220721
  Serious: Yes (Other)
  Sender: FDA-Public Use
  Company Number: CN-AstraZeneca-2022A166150

PATIENT

DRUGS (2)
  1. ZOLADEX [Suspect]
     Active Substance: GOSERELIN ACETATE
     Indication: Adenomyosis
     Dosage: 3.6 MG, MONTHLY
     Route: 058
     Dates: start: 202203
  2. ZOLADEX [Suspect]
     Active Substance: GOSERELIN ACETATE
     Indication: Adenomyosis
     Dosage: UNK
     Route: 065

REACTIONS (1)
  - Thrombosis [Unknown]
